FAERS Safety Report 6523512-3 (Version None)
Quarter: 2009Q4

REPORT INFORMATION
  Report Type: 
  Country: None (occurrence: None)
  Receive Date: 20091231
  Receipt Date: 20091221
  Transmission Date: 20100525
  Serious: Yes (Other)
  Sender: FDA-Public Use
  Company Number: PHHY2009ZA23041

PATIENT
  Sex: Female

DRUGS (4)
  1. COMBIPATCH [Suspect]
     Indication: HORMONE REPLACEMENT THERAPY
     Dosage: 1 DF, QW2
     Route: 062
     Dates: start: 20090603
  2. COMBIPATCH [Suspect]
     Dosage: 50/140
     Route: 062
  3. CIPRALEX [Concomitant]
     Indication: ANXIETY
     Dosage: 1/2 TAB DURING THE DAY AS NEEDED, AND 1 TAB AT NIGHT
     Route: 048
     Dates: start: 20090528
  4. ALZAM [Concomitant]
     Indication: ANXIETY
     Dosage: HALF A TAB DURING THE DAY AS NEEDED, AND 1 TAB AT NIGHT

REACTIONS (17)
  - ANXIETY [None]
  - BACK PAIN [None]
  - BLOOD FOLLICLE STIMULATING HORMONE INCREASED [None]
  - BLOOD OESTROGEN ABNORMAL [None]
  - DEPRESSION [None]
  - DIZZINESS [None]
  - FEELING JITTERY [None]
  - GAIT DISTURBANCE [None]
  - HEADACHE [None]
  - HORMONE LEVEL ABNORMAL [None]
  - INSOMNIA [None]
  - MEDICAL DEVICE COMPLICATION [None]
  - MYALGIA [None]
  - NERVOUSNESS [None]
  - SENSATION OF HEAVINESS [None]
  - TREMOR [None]
  - WEIGHT INCREASED [None]
